FAERS Safety Report 4944148-1 (Version None)
Quarter: 2006Q1

REPORT INFORMATION
  Report Type: 
  Country: None (occurrence: None)
  Receive Date: 20060315
  Receipt Date: 20060301
  Transmission Date: 20060701
  Serious: Yes (Hospitalization, Other)
  Sender: FDA-Public Use
  Company Number: US-AMGEN-KDL171239

PATIENT
  Sex: Female
  Weight: 46.3 kg

DRUGS (7)
  1. PROCRIT [Suspect]
     Indication: RENAL FAILURE CHRONIC
     Route: 058
     Dates: start: 20050829
  2. ATENOLOL [Concomitant]
     Route: 048
  3. PROGRAF [Concomitant]
     Route: 048
  4. CELLCEPT [Concomitant]
     Route: 048
  5. CALCITRIOL [Concomitant]
  6. FOSAMAX [Concomitant]
     Route: 048
  7. SENSIPAR [Concomitant]
     Indication: HYPERPARATHYROIDISM SECONDARY
     Route: 048

REACTIONS (5)
  - APLASIA PURE RED CELL [None]
  - DIARRHOEA [None]
  - HAEMATURIA [None]
  - RENAL TRANSPLANT [None]
  - THERAPEUTIC RESPONSE DECREASED [None]
